FAERS Safety Report 13014948 (Version 2)
Quarter: 2017Q2

REPORT INFORMATION
  Report Type: Report from Study
  Country: PL (occurrence: PL)
  Receive Date: 20161210
  Receipt Date: 20170523
  Transmission Date: 20170830
  Serious: Yes (Hospitalization)
  Sender: FDA-Public Use
  Company Number: PL-ASTRAZENECA-2016SF28218

PATIENT
  Age: 25763 Day
  Sex: Male

DRUGS (5)
  1. CANDESARTANUM CILEXETILUM (KARBICOMBI) [Concomitant]
     Indication: HYPERTENSION
     Route: 048
  2. ASPIRIN. [Concomitant]
     Active Substance: ASPIRIN
     Indication: CORONARY ARTERY DISEASE
     Route: 048
  3. AZD6140 [Suspect]
     Active Substance: TICAGRELOR
     Indication: CARDIOVASCULAR EVENT PROPHYLAXIS
     Route: 048
     Dates: start: 20140924, end: 20140928
  4. CANDESARTANUM CILEXETILUM (KARBICOMBI) [Concomitant]
     Indication: HYPERTENSION
     Route: 048
  5. NEBIVOLOL. [Concomitant]
     Active Substance: NEBIVOLOL
     Indication: HYPERTENSION
     Route: 048

REACTIONS (1)
  - Liver abscess [Recovered/Resolved]

NARRATIVE: CASE EVENT DATE: 20161110
